FAERS Safety Report 5690155-3 (Version None)
Quarter: 2008Q2

REPORT INFORMATION
  Report Type: 
  Country: None (occurrence: None)
  Receive Date: 20080401
  Receipt Date: 20080327
  Transmission Date: 20081010
  Serious: Yes (Life-Threatening)
  Sender: FDA-Public Use
  Company Number: GB-NOVOPROD-273485

PATIENT
  Age: 53 Year
  Sex: Female
  Weight: 99.3 kg

DRUGS (2)
  1. KLIOVANCE [Suspect]
     Indication: DRUG USE FOR UNKNOWN INDICATION
     Route: 048
     Dates: end: 20071001
  2. SIMVASTATIN [Suspect]
     Indication: DRUG USE FOR UNKNOWN INDICATION
     Dosage: 40 MG, QD

REACTIONS (2)
  - ANAPHYLACTIC REACTION [None]
  - WHEEZING [None]
